FAERS Safety Report 8611592-0 (Version None)
Quarter: 2012Q3

REPORT INFORMATION
  Report Type: 
  Country: None (occurrence: None)
  Receive Date: 20120822
  Receipt Date: 20120815
  Transmission Date: 20120928
  Serious: Yes (Other)
  Sender: FDA-Public Use
  Company Number: PHEH2012US015357

PATIENT
  Sex: Male
  Weight: 81.647 kg

DRUGS (5)
  1. ALPRAZOLAM [Concomitant]
     Indication: ANXIETY
     Dosage: 0.25 MG, TID
     Route: 048
     Dates: start: 20100215
  2. VITAMIN D [Concomitant]
     Dosage: 5000 U, QD
     Route: 048
     Dates: start: 20110107
  3. IBUPROFEN (ADVIL) [Concomitant]
     Dosage: 3 DF, PRN
     Route: 048
  4. GILENYA [Suspect]
     Dosage: 0.5 MG, QD
     Route: 048
     Dates: end: 20120807
  5. GILENYA [Suspect]
     Indication: MULTIPLE SCLEROSIS
     Dosage: 0.5 MG, QD
     Route: 048
     Dates: start: 20120718, end: 20120730

REACTIONS (8)
  - BRADYCARDIA [None]
  - SINUS ARRHYTHMIA [None]
  - PALPITATIONS [None]
  - DYSPNOEA [None]
  - SUPRAVENTRICULAR EXTRASYSTOLES [None]
  - VENTRICULAR EXTRASYSTOLES [None]
  - TACHYCARDIA [None]
  - DIZZINESS [None]
